FAERS Safety Report 5431219-9 (Version None)
Quarter: 2007Q3

REPORT INFORMATION
  Report Type: 
  Country: None (occurrence: None)
  Receive Date: 20070830
  Receipt Date: 20070817
  Transmission Date: 20080115
  Serious: Yes (Other)
  Sender: FDA-Public Use
  Company Number: DE-ELI_LILLY_AND_COMPANY-DE200708003850

PATIENT
  Age: 54 Year
  Sex: Female
  Weight: 110 kg

DRUGS (8)
  1. SOMATROPIN [Suspect]
     Indication: GROWTH HORMONE DEFICIENCY
     Dosage: 1.6 MG, UNK
     Route: 058
     Dates: start: 20040216, end: 20070612
  2. SOMATROPIN [Suspect]
     Dosage: 0.4 MG, UNK
     Route: 058
     Dates: start: 20070613, end: 20070810
  3. SOMATROPIN [Suspect]
     Route: 058
     Dates: start: 20000111
  4. SOMATROPIN [Suspect]
     Dates: start: 20000101, end: 20000110
  5. HYDROCORTISONE [Concomitant]
     Indication: ADRENAL INSUFFICIENCY
     Dosage: 35 MG, UNK
     Dates: start: 19980101
  6. LEVOTHYROXINE SODIUM [Concomitant]
     Indication: GOITRE
     Dosage: 100 UG, UNK
     Dates: start: 19990901
  7. LOCOL [Concomitant]
     Indication: HYPERCHOLESTEROLAEMIA
     Dosage: 20 MG, UNK
     Dates: start: 20061201
  8. ACTONEL [Concomitant]
     Indication: OSTEOPOROSIS
     Dosage: 35 MG, WEEKLY (1/W)
     Dates: start: 20050301

REACTIONS (2)
  - PITUITARY TUMOUR BENIGN [None]
  - PITUITARY TUMOUR RECURRENT [None]
